FAERS Safety Report 17875311 (Version 3)
Quarter: 2020Q3

REPORT INFORMATION
  Report Type: Report from Study
  Country: US (occurrence: US)
  Receive Date: 20200609
  Receipt Date: 20200721
  Transmission Date: 20201103
  Serious: Yes (Death, Life-Threatening, Hospitalization, Other)
  Sender: FDA-Public Use
  Company Number: NVSC2020US152475

PATIENT

DRUGS (8)
  1. BLINDED NO TREATMENT RECEIVED [Suspect]
     Active Substance: INVESTIGATIONAL PRODUCT
     Indication: RESPIRATORY DISORDER
  2. BLINDED ACZ885 [Suspect]
     Active Substance: CANAKINUMAB
     Indication: RESPIRATORY DISORDER
  3. BLINDED ACZ885 [Suspect]
     Active Substance: CANAKINUMAB
     Indication: CARDIAC DYSFUNCTION
     Dosage: CODE NOT BROKEN
     Route: 042
     Dates: start: 20200507
  4. PLACEBO [Suspect]
     Active Substance: UNSPECIFIED INGREDIENT
     Indication: RESPIRATORY DISORDER
  5. BLINDED ACZ885 [Suspect]
     Active Substance: CANAKINUMAB
     Indication: CARDIAC DYSFUNCTION
     Dosage: CODE NOT BROKEN
     Route: 042
     Dates: start: 20200507
  6. BLINDED NO TREATMENT RECEIVED [Suspect]
     Active Substance: INVESTIGATIONAL PRODUCT
     Indication: CARDIAC DYSFUNCTION
     Dosage: CODE NOT BROKEN
     Route: 042
     Dates: start: 20200507
  7. PLACEBO [Suspect]
     Active Substance: UNSPECIFIED INGREDIENT
     Indication: CARDIAC DYSFUNCTION
     Dosage: CODE NOT BROKEN
     Route: 042
     Dates: start: 20200507
  8. BLINDED ACZ885 [Suspect]
     Active Substance: CANAKINUMAB
     Indication: RESPIRATORY DISORDER

REACTIONS (5)
  - Pneumothorax [Recovered/Resolved]
  - Acute kidney injury [Recovered/Resolved]
  - Cardiac arrest [Fatal]
  - Staphylococcal infection [Recovered/Resolved]
  - Shock [Recovered/Resolved]

NARRATIVE: CASE EVENT DATE: 20200512
